FAERS Safety Report 9265394 (Version 1)
Quarter: 2013Q2

REPORT INFORMATION
  Report Type: Spontaneous
  Country: US (occurrence: US)
  Receive Date: 20130501
  Receipt Date: 20130501
  Transmission Date: 20140414
  Serious: Yes (Other)
  Sender: FDA-Public Use
  Company Number: US-ELI_LILLY_AND_COMPANY-US201304002687

PATIENT
  Age: 59 Year
  Sex: Male

DRUGS (1)
  1. HUMULIN 30% REGULAR, 70% NPH [Suspect]
     Indication: DIABETES MELLITUS
     Dosage: 90 U, BID

REACTIONS (4)
  - Diarrhoea haemorrhagic [Unknown]
  - Nausea [Not Recovered/Not Resolved]
  - Panic attack [Unknown]
  - Product tampering [Unknown]
